FAERS Safety Report 10908408 (Version 1)
Quarter: 2015Q1

REPORT INFORMATION
  Report Type: Spontaneous
  Country: US (occurrence: None)
  Receive Date: 20150309
  Receipt Date: 20150309
  Transmission Date: 20150721
  Serious: Yes (Disabling)
  Sender: FDA-Public Use
  Company Number: None

PATIENT
  Age: 64 Year
  Sex: Female
  Weight: 61.24 kg

DRUGS (2)
  1. MARTHA STEWART VEGETABLE  VITAMIN D AND CALCIUM [Concomitant]
  2. FORTEO [Suspect]
     Active Substance: TERIPARATIDE
     Indication: OSTEOPOROSIS
     Dosage: 20MCG, ONCE DAILY, GIVEN INTO/UNDER THE SKIN
     Dates: start: 20150204, end: 20150303

REACTIONS (11)
  - Anxiety [None]
  - Headache [None]
  - Dysgeusia [None]
  - Fatigue [None]
  - Toxicity to various agents [None]
  - Sluggishness [None]
  - Tendon discomfort [None]
  - Dehydration [None]
  - Nausea [None]
  - Dizziness [None]
  - Arthralgia [None]

NARRATIVE: CASE EVENT DATE: 20150204
